FAERS Safety Report 15059296 (Version 1)
Quarter: 2018Q2

REPORT INFORMATION
  Report Type: Spontaneous
  Country: FR (occurrence: FR)
  Receive Date: 20180625
  Receipt Date: 20180625
  Transmission Date: 20180711
  Serious: Yes (Other)
  Sender: FDA-Public Use
  Company Number: FR-ASTELLAS-2018US027666

PATIENT
  Age: 8 Month
  Sex: Male
  Weight: 3 kg

DRUGS (4)
  1. VESICARE [Suspect]
     Active Substance: SOLIFENACIN SUCCINATE
     Indication: FOETAL EXPOSURE DURING PREGNANCY
     Dosage: 5 MG, ONCE DAILY (MATERNAL DOSE)
     Route: 064
  2. NEURONTIN [Suspect]
     Active Substance: GABAPENTIN
     Indication: FOETAL EXPOSURE DURING PREGNANCY
     Dosage: 1.8 G, ONCE DAILY (MATERNAL DOSE)
     Route: 064
  3. GILENYA [Suspect]
     Active Substance: FINGOLIMOD HYDROCHLORIDE
     Indication: FOETAL EXPOSURE DURING PREGNANCY
     Dosage: 0.5 MG, ONCE DAILY (MATERNAL DOSE)
     Route: 064
  4. TRILEPTAL [Suspect]
     Active Substance: OXCARBAZEPINE
     Indication: FOETAL EXPOSURE DURING PREGNANCY
     Dosage: 900 MG, ONCE DAILY (MATERNAL DOSE)
     Route: 064

REACTIONS (1)
  - Foetal heart rate disorder [Unknown]
